FAERS Safety Report 12092031 (Version 1)
Quarter: 2016Q1

REPORT INFORMATION
  Report Type: Report from Study
  Country: US (occurrence: US)
  Receive Date: 20160219
  Receipt Date: 20160219
  Transmission Date: 20160526
  Serious: Yes (Other)
  Sender: FDA-Public Use
  Company Number: US-AMGEN-USASL2016019221

PATIENT
  Age: 34 Year
  Sex: Male

DRUGS (1)
  1. ENBREL [Suspect]
     Active Substance: ETANERCEPT
     Indication: PRODUCT USED FOR UNKNOWN INDICATION
     Dosage: UNK
     Route: 065

REACTIONS (8)
  - Impaired work ability [Unknown]
  - Dysarthria [Unknown]
  - Repetitive speech [Unknown]
  - Depression [Unknown]
  - Pain [Unknown]
  - Cognitive disorder [Unknown]
  - Autoimmune disorder [Unknown]
  - Slow speech [Unknown]
